FAERS Safety Report 6238840-9 (Version None)
Quarter: 2009Q2

REPORT INFORMATION
  Report Type: 
  Country: None (occurrence: None)
  Receive Date: 20090622
  Receipt Date: 20090611
  Transmission Date: 20091009
  Serious: Yes (Other)
  Sender: FDA-Public Use
  Company Number: FR-CELGENEUS-056-50794-09060965

PATIENT
  Age: 72 Year
  Sex: Male

DRUGS (1)
  1. VIDAZA [Suspect]
     Indication: SIDEROBLASTIC ANAEMIA
     Route: 058
     Dates: start: 20090330

REACTIONS (1)
  - OPTIC NEUROPATHY [None]
